FAERS Safety Report 21635198 (Version 1)
Quarter: 2022Q4

REPORT INFORMATION
  Report Type: Spontaneous
  Country: US (occurrence: US)
  Receive Date: 20221123
  Receipt Date: 20221123
  Transmission Date: 20230113
  Serious: No
  Sender: FDA-Public Use
  Company Number: US-NOVOPROD-951713

PATIENT
  Sex: Female

DRUGS (2)
  1. INSULIN ASPART [Suspect]
     Active Substance: INSULIN ASPART
     Indication: Type 1 diabetes mellitus
     Dosage: 20 TO 50 A DAY
     Route: 058
     Dates: start: 20220808
  2. INSULIN ASPART [Suspect]
     Active Substance: INSULIN ASPART
     Dosage: UNK (DOSE INCREASED)
     Route: 058

REACTIONS (3)
  - Hypoaesthesia oral [Not Recovered/Not Resolved]
  - Paraesthesia [Not Recovered/Not Resolved]
  - Blood glucose increased [Not Recovered/Not Resolved]

NARRATIVE: CASE EVENT DATE: 20220808
